FAERS Safety Report 19592464 (Version 3)
Quarter: 2021Q3

REPORT INFORMATION
  Report Type: Report from Study
  Country: CA (occurrence: CA)
  Receive Date: 20210722
  Receipt Date: 20210902
  Transmission Date: 20211014
  Serious: Yes (Other)
  Sender: FDA-Public Use
  Company Number: CA-JNJFOC-20210735275

PATIENT
  Age: 19 Year
  Sex: Female

DRUGS (2)
  1. REMICADE [Suspect]
     Active Substance: INFLIXIMAB
     Indication: CROHN^S DISEASE
     Dosage: DATE OF TREATMENT:31?JUL?2021
     Route: 042
     Dates: start: 20210714
  2. REMICADE [Suspect]
     Active Substance: INFLIXIMAB
     Route: 042

REACTIONS (9)
  - Fatigue [Recovered/Resolved]
  - Peripheral swelling [Not Recovered/Not Resolved]
  - Infusion related reaction [Recovered/Resolved]
  - Paraesthesia [Recovered/Resolved]
  - Abdominal pain [Recovering/Resolving]
  - Drug specific antibody present [Not Recovered/Not Resolved]
  - Pain in extremity [Recovering/Resolving]
  - Paraesthesia [Recovered/Resolved]
  - General physical health deterioration [Unknown]

NARRATIVE: CASE EVENT DATE: 2021
